FAERS Safety Report 9147562 (Version 1)
Quarter: 2013Q1

REPORT INFORMATION
  Report Type: Spontaneous
  Country: BR (occurrence: BR)
  Receive Date: 20130307
  Receipt Date: 20130307
  Transmission Date: 20140127
  Serious: Yes (Hospitalization)
  Sender: FDA-Public Use
  Company Number: BR-009507513-1303BRA001629

PATIENT
  Sex: Male
  Weight: 80 kg

DRUGS (1)
  1. TIMOPTOL XE [Suspect]
     Indication: INTRAOCULAR PRESSURE INCREASED
     Dosage: 1 DROP ON RIGHT EYE, QD
     Route: 047
     Dates: start: 2003

REACTIONS (11)
  - Hernia repair [Unknown]
  - Vocal cord polypectomy [Unknown]
  - Umbilical hernia [Recovered/Resolved]
  - Vocal cord polyp [Recovered/Resolved]
  - Salivary gland disorder [Not Recovered/Not Resolved]
  - Abdominal discomfort [Unknown]
  - Helicobacter infection [Unknown]
  - Poor quality sleep [Not Recovered/Not Resolved]
  - Expired drug administered [Unknown]
  - Underdose [Unknown]
  - Asthma [Not Recovered/Not Resolved]
